FAERS Safety Report 4577877-2 (Version None)
Quarter: 2005Q1

REPORT INFORMATION
  Report Type: 
  Country: None (occurrence: None)
  Receive Date: 20050209
  Receipt Date: 20050120
  Transmission Date: 20050727
  Serious: Yes (Hospitalization)
  Sender: FDA-Public Use
  Company Number: EWC050142349

PATIENT
  Age: 51 Year
  Sex: Female

DRUGS (4)
  1. ZYPREXA [Suspect]
     Indication: PSYCHOTIC DISORDER
     Dosage: 10 MG DAY
     Dates: start: 20041130
  2. DEPAKENE [Concomitant]
  3. STESOLID (DIAZEPAM) [Concomitant]
  4. GEWACALM (DIAZEPAM) [Concomitant]

REACTIONS (5)
  - CATATONIA [None]
  - DISEASE RECURRENCE [None]
  - GRAND MAL CONVULSION [None]
  - HYPOKALAEMIA [None]
  - PNEUMONIA [None]
